FAERS Safety Report 17848965 (Version 6)
Quarter: 2020Q4

REPORT INFORMATION
  Report Type: Spontaneous
  Country: US (occurrence: US)
  Receive Date: 20200602
  Receipt Date: 20201104
  Transmission Date: 20210113
  Serious: No
  Sender: FDA-Public Use
  Company Number: NVSC2020US151251

PATIENT
  Sex: Male

DRUGS (2)
  1. MEKINIST [Suspect]
     Active Substance: TRAMETINIB DIMETHYL SULFOXIDE
     Indication: MALIGNANT MELANOMA
     Dosage: 2 MG, QD
     Route: 048
     Dates: start: 20200501
  2. TAFINLAR [Suspect]
     Active Substance: DABRAFENIB MESYLATE
     Indication: MALIGNANT MELANOMA
     Dosage: 150 MG, Q12H
     Route: 048
     Dates: start: 20200501

REACTIONS (8)
  - Vision blurred [Unknown]
  - Vitreous floaters [Unknown]
  - Headache [Unknown]
  - Urine output increased [Unknown]
  - Visual impairment [Unknown]
  - Fatigue [Unknown]
  - Product dose omission issue [Unknown]
  - Muscle spasms [Unknown]
